FAERS Safety Report 9748770 (Version 2)
Quarter: 2013Q4

REPORT INFORMATION
  Report Type: Spontaneous
  Country: JP (occurrence: JP)
  Receive Date: 20131212
  Receipt Date: 20131212
  Transmission Date: 20140711
  Serious: Yes (Death)
  Sender: FDA-Public Use
  Company Number: JP-PFIZER INC-2013278444

PATIENT
  Age: 57 Year
  Sex: Male
  Weight: 49.9 kg

DRUGS (9)
  1. LYRICA [Suspect]
     Indication: PAIN
     Dosage: 75 MG, 1X/DAY
     Route: 048
     Dates: start: 20130909, end: 20130922
  2. CARBAMAZEPINE [Concomitant]
     Indication: TEMPORAL LOBE EPILEPSY
     Dosage: 100 MG, 2X/DAY
     Route: 048
     Dates: start: 20121016, end: 20131016
  3. E KEPPRA [Concomitant]
     Indication: TEMPORAL LOBE EPILEPSY
     Dosage: 500 MG, 2X/DAY
     Route: 048
     Dates: start: 20121016, end: 20131016
  4. LOXOPROFEN [Concomitant]
     Indication: PAIN
     Dosage: 0.6 G, 3X/DAY
     Route: 048
     Dates: start: 20130731, end: 20131003
  5. FENTANYL [Concomitant]
     Indication: PAIN
     Dosage: 600 MG, DAILY
     Route: 058
     Dates: start: 20130905, end: 20130909
  6. FENTANYL [Concomitant]
     Dosage: 720 MG, DAILY
     Route: 058
     Dates: start: 20130909, end: 20130909
  7. FENTANYL [Concomitant]
     Dosage: 960 MG, 1X/DAY
     Route: 058
     Dates: start: 20130909, end: 20130911
  8. FENTANYL [Concomitant]
     Dosage: 1080 MG, 1X/DAY
     Route: 058
     Dates: start: 20130911, end: 20130915
  9. DAI-KENCHU-TO [Concomitant]
     Indication: ABDOMINAL PAIN
     Dosage: 0.5 G, 3X/DAY
     Route: 048
     Dates: start: 20130806, end: 20131003

REACTIONS (3)
  - Pancreatic carcinoma [Fatal]
  - Diplopia [Unknown]
  - Visual impairment [Unknown]
